FAERS Safety Report 6314862-4 (Version None)
Quarter: 2009Q3

REPORT INFORMATION
  Report Type: 
  Country: None (occurrence: None)
  Receive Date: 20090814
  Receipt Date: 20090814
  Transmission Date: 20100115
  Serious: Yes (Other)
  Sender: FDA-Public Use
  Company Number: None

PATIENT
  Age: 40 Year
  Sex: Male
  Weight: 100 kg

DRUGS (4)
  1. XYLOMETAZOLINE HYDROCHLORIDE (NCH) (XYLOMETAZOLINE HYDROCHLORIDE) UNKN [Suspect]
     Indication: COUGH
     Dosage: VIA FALSA
  2. XYLOMETAZOLINE HYDROCHLORIDE (NCH) (XYLOMETAZOLINE HYDROCHLORIDE) UNKN [Suspect]
     Indication: SENSE OF OPPRESSION
     Dosage: VIA FALSA
  3. PULMICORT [Suspect]
     Indication: COUGH
     Dosage: VIA FALSA
  4. PULMICORT [Suspect]
     Indication: SENSE OF OPPRESSION
     Dosage: VIA FALSA

REACTIONS (5)
  - BRONCHOSPASM [None]
  - INCORRECT ROUTE OF DRUG ADMINISTRATION [None]
  - LOSS OF CONSCIOUSNESS [None]
  - OFF LABEL USE [None]
  - WRONG TECHNIQUE IN DRUG USAGE PROCESS [None]
